FAERS Safety Report 6130038-8 (Version None)
Quarter: 2009Q1

REPORT INFORMATION
  Report Type: 
  Country: None (occurrence: None)
  Receive Date: 20090323
  Receipt Date: 20090323
  Transmission Date: 20090719
  Serious: Yes (Other)
  Sender: FDA-Public Use
  Company Number: None

PATIENT
  Age: 47 Year
  Sex: Female
  Weight: 67.586 kg

DRUGS (2)
  1. PHENDIMETRAZINE 35MG #42 YELLOW ROUND TAB SANDOZ INC. NDC #0185-4057-1 [Suspect]
     Indication: WEIGHT CONTROL
     Dosage: 35MG. 2 TAB 3X A DAY
     Dates: start: 20080827, end: 20090120
  2. PHENDIMETRAZINE 35MG #42 YELLOW ROUND TAB SANDOZ INC. NDC #0185-4057-1 [Suspect]
     Indication: WEIGHT CONTROL
     Dosage: 35MG. 2 TAB 3X A DAY
     Dates: start: 20080827, end: 20090120

REACTIONS (2)
  - ALOPECIA [None]
  - NAIL DISORDER [None]
